FAERS Safety Report 8958994 (Version 1)
Quarter: 2012Q4

REPORT INFORMATION
  Report Type: 
  Country: JP (occurrence: JP)
  Receive Date: 20121212
  Receipt Date: 20121212
  Transmission Date: 20130627
  Serious: Yes (Other)
  Sender: FDA-Public Use
  Company Number: PHHY2012JP113717

PATIENT
  Age: 51 Year
  Sex: Female

DRUGS (11)
  1. FTY 720 [Suspect]
     Indication: MULTIPLE SCLEROSIS RELAPSE
     Dosage: 0.5 mg, QD
     Route: 048
     Dates: start: 20120428
  2. MYONAL [Concomitant]
     Dosage: 150 mg, UNK
     Route: 048
  3. TEGRETOL [Concomitant]
     Dosage: 200 mg, UNK
     Route: 048
  4. MYSLEE [Concomitant]
     Dosage: 10 mg, UNK
     Route: 048
  5. VESICARE [Concomitant]
     Dosage: 7.5 mg, UNK
     Route: 048
  6. LIORESAL [Concomitant]
     Dosage: 15 mg, UNK
     Route: 048
  7. PROMAC [Concomitant]
     Dosage: 150 mg, UNK
     Route: 048
  8. LOXONIN [Concomitant]
     Dosage: 180 mg, UNK
     Route: 048
  9. NAUZELIN [Concomitant]
     Dosage: 30 mg, UNK
     Route: 048
  10. LYRICA [Concomitant]
     Dosage: 150 mg, UNK
     Route: 048
  11. IMURAN [Concomitant]
     Dosage: 100 mg, UNK
     Route: 048

REACTIONS (6)
  - Liver disorder [Recovered/Resolved]
  - Alanine aminotransferase increased [Unknown]
  - Aspartate aminotransferase increased [Unknown]
  - White blood cell count decreased [Unknown]
  - Neutrophil count decreased [Unknown]
  - Lymphocyte count decreased [Unknown]
